FAERS Safety Report 5292580-1 (Version None)
Quarter: 2007Q2

REPORT INFORMATION
  Report Type: 
  Country: None (occurrence: None)
  Receive Date: 20070404
  Receipt Date: 20070322
  Transmission Date: 20071010
  Serious: Yes (Hospitalization)
  Sender: FDA-Public Use
  Company Number: T200700247

PATIENT
  Age: 62 Year
  Sex: Male
  Weight: 59 kg

DRUGS (2)
  1. OPTIRAY(IOVERSOL) SOLUTION FOR INJECTION, 320 [Suspect]
     Indication: ABDOMEN SCAN
     Dosage: 100 ML, SINGLE, INTRAVENOUS
     Route: 042
     Dates: start: 20070129, end: 20070129
  2. BARIUM SULFATE (BARIUM SULFATE) [Concomitant]

REACTIONS (3)
  - FALSE POSITIVE LABORATORY RESULT [None]
  - HEADACHE [None]
  - STEVENS-JOHNSON SYNDROME [None]
